FAERS Safety Report 13891038 (Version 1)
Quarter: 2017Q3

REPORT INFORMATION
  Report Type: Spontaneous
  Country: US (occurrence: US)
  Receive Date: 20170822
  Receipt Date: 20170822
  Transmission Date: 20171127
  Serious: Yes (Hospitalization, Other)
  Sender: FDA-Public Use
  Company Number: US-TORRENT-00003277

PATIENT
  Age: 88 Year
  Sex: Male

DRUGS (3)
  1. CLOPIDOGREL [Suspect]
     Active Substance: CLOPIDOGREL BISULFATE
  2. APIXABAN [Suspect]
     Active Substance: APIXABAN
  3. ACETYLSALICYILIC ACID/ACETYLSALICYLIC ACID [Suspect]
     Active Substance: ASPIRIN

REACTIONS (5)
  - Gallbladder perforation [Recovered/Resolved]
  - Cholecystitis [Recovered/Resolved]
  - Pleural effusion [Recovered/Resolved]
  - Haemorrhagic ascites [Recovered/Resolved]
  - Gastrointestinal wall thickening [Recovered/Resolved]
